FAERS Safety Report 7425675-4 (Version None)
Quarter: 2011Q2

REPORT INFORMATION
  Report Type: 
  Country: None (occurrence: None)
  Receive Date: 20110418
  Receipt Date: 20110418
  Transmission Date: 20111010
  Serious: Yes (Other)
  Sender: FDA-Public Use
  Company Number: None

PATIENT
  Age: 60 Year
  Sex: Female
  Weight: 53.7512 kg

DRUGS (2)
  1. SYNTHROID [Concomitant]
  2. ZOLPIDEM [Suspect]
     Indication: INSOMNIA
     Dosage: 5MG AMBIEN DAILY P.O.
     Route: 048
     Dates: start: 20110412

REACTIONS (5)
  - ABDOMINAL PAIN UPPER [None]
  - DRUG INTOLERANCE [None]
  - DIZZINESS [None]
  - PRODUCT SUBSTITUTION ISSUE [None]
  - VOMITING [None]
